FAERS Safety Report 5149220-1 (Version None)
Quarter: 2006Q4

REPORT INFORMATION
  Report Type: 
  Country: None (occurrence: None)
  Receive Date: 20061113
  Receipt Date: 20061101
  Transmission Date: 20070319
  Serious: Yes (Hospitalization)
  Sender: FDA-Public Use
  Company Number: US-AMGEN-STX198930

PATIENT
  Sex: Female

DRUGS (1)
  1. ENBREL [Suspect]
     Indication: ANKYLOSING SPONDYLITIS
     Route: 065
     Dates: start: 20050501, end: 20050901

REACTIONS (3)
  - CLOSTRIDIAL INFECTION [None]
  - ENTEROCOLITIS HAEMORRHAGIC [None]
  - SYNCOPE [None]
